FAERS Safety Report 7638064-4 (Version None)
Quarter: 2011Q3

REPORT INFORMATION
  Report Type: 
  Country: None (occurrence: None)
  Receive Date: 20110720
  Receipt Date: 20110207
  Transmission Date: 20111222
  Serious: Yes (Other)
  Sender: FDA-Public Use
  Company Number: EUS-2011-00154

PATIENT
  Sex: Male

DRUGS (1)
  1. QUADRAMET [Suspect]
     Indication: PROSTATE CANCER
     Dosage: 0.25 MILLICURIES/KG ONCE, INTRAVENOUS
     Route: 042

REACTIONS (2)
  - HAEMATOTOXICITY [None]
  - HAEMOGLOBIN DECREASED [None]
